FAERS Safety Report 18029034 (Version 1)
Quarter: 2020Q3

REPORT INFORMATION
  Report Type: Spontaneous
  Country: US (occurrence: US)
  Receive Date: 20200713
  Receipt Date: 20200713
  Transmission Date: 20201103
  Serious: No
  Sender: FDA-Public Use
  Company Number: None

PATIENT

DRUGS (2)
  1. CLOTRIMAZOLE 1% CREAM [Suspect]
     Active Substance: CLOTRIMAZOLE
  2. SULFAMETHOXAZOLE/TMP [Suspect]
     Active Substance: SULFAMETHOXAZOLE\TRIMETHOPRIM

REACTIONS (3)
  - Circumstance or information capable of leading to medication error [None]
  - Product dispensing error [None]
  - Incorrect route of product administration [None]

NARRATIVE: CASE EVENT DATE: 2020
